FAERS Safety Report 5392188-3 (Version None)
Quarter: 2007Q3

REPORT INFORMATION
  Report Type: 
  Country: None (occurrence: None)
  Receive Date: 20070717
  Receipt Date: 20070717
  Transmission Date: 20080115
  Serious: Yes (Hospitalization)
  Sender: FDA-Public Use
  Company Number: None

PATIENT
  Age: 59 Year
  Sex: Male

DRUGS (5)
  1. SIMVASTATIN [Suspect]
     Indication: HYPERLIPIDAEMIA
     Dosage: 20 MG DAILY PO
     Route: 048
     Dates: start: 20060208, end: 20060210
  2. METOPROLOL SUCCINATE [Concomitant]
  3. NITROGLYCERIN SL [Concomitant]
  4. CEFEPIME [Concomitant]
  5. TYLENOL (CAPLET) [Concomitant]

REACTIONS (1)
  - RHABDOMYOLYSIS [None]
